FAERS Safety Report 6302682-6 (Version None)
Quarter: 2009Q3

REPORT INFORMATION
  Report Type: 
  Country: None (occurrence: None)
  Receive Date: 20090810
  Receipt Date: 20090727
  Transmission Date: 20100115
  Serious: Yes (Other)
  Sender: FDA-Public Use
  Company Number: PHHY2009CA30225

PATIENT
  Sex: Female

DRUGS (6)
  1. CLOZARIL [Suspect]
     Indication: PSYCHOTIC DISORDER
     Dosage: 50 MG, DAILY
     Route: 048
     Dates: start: 20081215, end: 20090604
  2. AMILORIDE HYDROCHLORIDE [Concomitant]
     Dosage: 5 MG, UNK
  3. COZAAR [Concomitant]
     Dosage: 50 MG, UNK
  4. ELTROXIN [Concomitant]
     Dosage: 0.1 MG, UNK
  5. CITALOPRAM [Concomitant]
     Dosage: 40 MG, UNK
  6. LITHIUM [Concomitant]
     Dosage: 900 MG, UNK

REACTIONS (6)
  - COGNITIVE DISORDER [None]
  - FALL [None]
  - GRIP STRENGTH DECREASED [None]
  - MEMORY IMPAIRMENT [None]
  - MYOCLONUS [None]
  - SOMNOLENCE [None]
